FAERS Safety Report 12245327 (Version 1)
Quarter: 2016Q2

REPORT INFORMATION
  Report Type: Spontaneous
  Country: CA (occurrence: None)
  Receive Date: 20160406
  Receipt Date: 20160406
  Transmission Date: 20160815
  Serious: No
  Sender: FDA-Public Use
  Company Number: None

PATIENT
  Age: 27 Year
  Sex: Male
  Weight: 99.79 kg

DRUGS (1)
  1. EPHEDRINE HCL 8MG, 4EVERFIT [Suspect]
     Active Substance: EPHEDRINE HYDROCHLORIDE
     Indication: WEIGHT DECREASED
     Route: 048

REACTIONS (2)
  - Self-medication [None]
  - Haematospermia [None]

NARRATIVE: CASE EVENT DATE: 20160404
